FAERS Safety Report 6170071-3 (Version None)
Quarter: 2009Q2

REPORT INFORMATION
  Report Type: 
  Country: None (occurrence: None)
  Receive Date: 20090428
  Receipt Date: 20090421
  Transmission Date: 20091009
  Serious: Yes (Other)
  Sender: FDA-Public Use
  Company Number: A0779655A

PATIENT
  Age: 65 Year
  Sex: Female

DRUGS (11)
  1. ADVAIR HFA [Suspect]
     Indication: ASTHMA
     Route: 055
     Dates: start: 20040101
  2. SINGULAIR [Concomitant]
  3. TRILEPTAL [Concomitant]
  4. SEROQUEL [Concomitant]
  5. ZONEGRAN [Concomitant]
  6. EFFEXOR [Concomitant]
  7. DIOVAN [Concomitant]
  8. TRICOR [Concomitant]
  9. DETROL [Concomitant]
  10. NEXIUM [Concomitant]
  11. TYLENOL [Concomitant]

REACTIONS (5)
  - ANOREXIA [None]
  - DYSPNOEA [None]
  - LOSS OF CONSCIOUSNESS [None]
  - MALAISE [None]
  - OXYGEN SATURATION DECREASED [None]
